FAERS Safety Report 10045714 (Version 1)
Quarter: 2014Q1

REPORT INFORMATION
  Report Type: Spontaneous
  Country: US (occurrence: None)
  Receive Date: 20140306
  Receipt Date: 20140306
  Transmission Date: 20141002
  Serious: Yes (Hospitalization)
  Sender: FDA-Public Use
  Company Number: 163-21880-13054865

PATIENT
  Age: 86 Year
  Sex: Female
  Weight: 78.74 kg

DRUGS (13)
  1. REVLIMID (LENALIDOMIDE) (10 MILLIGRAM, CAPSULES) [Suspect]
     Indication: PLASMA CELL MYELOMA
     Dosage: 2/2013 - TEMPORARILY;  21 IN 21 D
     Route: 048
     Dates: start: 201302
  2. LISINOPRIL [Concomitant]
  3. PRILOSEC (OMEPRAZOLE) [Concomitant]
  4. OSCAL PLUS (CALCIUM CARBONATE) [Concomitant]
  5. ALENDRONATE (ALENDRONATE SODIUM) [Concomitant]
  6. ASA (ACETYLSALICYLIC ACID) [Concomitant]
  7. CENTRUM SILVER [Concomitant]
  8. CLOPIDOGREL [Concomitant]
  9. EXELON (RIVASTIGMINE TARTRATE) [Concomitant]
  10. FLUOXETINE [Concomitant]
  11. FUROSEMIDE [Concomitant]
  12. LEVOTHYROXINE [Concomitant]
  13. DEXAMETHASONE [Concomitant]

REACTIONS (1)
  - Deep vein thrombosis [None]
